FAERS Safety Report 8463243-6 (Version None)
Quarter: 2012Q2

REPORT INFORMATION
  Report Type: 
  Country: None (occurrence: None)
  Receive Date: 20120625
  Receipt Date: 20120619
  Transmission Date: 20120825
  Serious: Yes (Other)
  Sender: FDA-Public Use
  Company Number: US-BRISTOL-MYERS SQUIBB COMPANY-16664377

PATIENT
  Age: 79 Year
  Sex: Female

DRUGS (4)
  1. COGENTIN [Concomitant]
  2. REMERON [Concomitant]
  3. ABILIFY [Suspect]
     Indication: SCHIZOPHRENIA
     Dosage: TABS
     Route: 048
  4. HALDOL [Concomitant]

REACTIONS (2)
  - DEMENTIA [None]
  - DECREASED APPETITE [None]
